FAERS Safety Report 10095588 (Version 4)
Quarter: 2014Q2

REPORT INFORMATION
  Report Type: Report from Study
  Country: US (occurrence: US)
  Receive Date: 20140422
  Receipt Date: 20140528
  Transmission Date: 20141212
  Serious: Yes (Death, Life-Threatening, Hospitalization)
  Sender: FDA-Public Use
  Company Number: US-ACTELION-A-US2014-97543

PATIENT
  Age: 76 Year
  Sex: Female

DRUGS (9)
  1. TRACLEER [Suspect]
     Indication: PULMONARY ARTERIAL HYPERTENSION
     Dosage: 125 MG, BID
     Route: 048
     Dates: start: 20130218, end: 20140417
  2. DIFLUCAN [Concomitant]
  3. LEVOTHYROXINE [Concomitant]
  4. FLAGYL [Concomitant]
  5. PROTONIX [Concomitant]
  6. CEFTAZIDIME [Concomitant]
  7. INSULIN LISPRO [Concomitant]
  8. ZOFRAN [Concomitant]
  9. VANCOMYCIN [Concomitant]

REACTIONS (19)
  - Gastrointestinal ischaemia [Fatal]
  - Renal failure chronic [Fatal]
  - Multi-organ failure [Unknown]
  - Leukocytosis [Fatal]
  - Abdominal pain [Fatal]
  - Failure to thrive [Fatal]
  - Blood albumin abnormal [Fatal]
  - Sepsis [Unknown]
  - Blood glucose decreased [Unknown]
  - Oxygen saturation decreased [Unknown]
  - Blood pressure decreased [Unknown]
  - Liver function test abnormal [Unknown]
  - Aspartate aminotransferase increased [Unknown]
  - Alanine aminotransferase increased [Unknown]
  - Blood alkaline phosphatase increased [Unknown]
  - Blood bilirubin increased [Unknown]
  - Insomnia [Unknown]
  - Diarrhoea [Recovering/Resolving]
  - Hyponatraemia [Recovered/Resolved]
